FAERS Safety Report 8576732 (Version 2)
Quarter: 2012Q4

REPORT INFORMATION
  Report Type: 
  Country: JP (occurrence: JP)
  Receive Date: 20120523
  Receipt Date: 20121123
  Transmission Date: 20130627
  Serious: Yes (Hospitalization, Other)
  Sender: FDA-Public Use
  Company Number: JP-ROCHE-1001736

PATIENT
  Age: 61 Year
  Sex: Female
  Weight: 38 kg

DRUGS (25)
  1. ACTEMRA [Suspect]
     Indication: RHEUMATOID ARTHRITIS
     Route: 041
     Dates: start: 20100826, end: 20110308
  2. MAGMITT [Concomitant]
     Route: 048
  3. PREDONINE [Concomitant]
     Indication: RHEUMATOID ARTHRITIS
     Dosage: 4.5T3 x M2 T1.5 A1.0
     Route: 048
  4. PREDONINE [Concomitant]
     Indication: RHEUMATOID ARTHRITIS
     Route: 048
     Dates: start: 20110302
  5. OMEPRAL [Concomitant]
     Route: 048
     Dates: start: 20100805, end: 20101209
  6. CLARITH [Concomitant]
     Indication: ATYPICAL MYCOBACTERIAL INFECTION
     Route: 048
     Dates: start: 201005
  7. BAKTAR [Concomitant]
     Indication: PROPHYLAXIS
     Route: 048
     Dates: start: 20100816
  8. LANDSEN [Concomitant]
     Route: 048
     Dates: start: 20100909
  9. ALESION [Concomitant]
     Indication: ERYTHEMA
     Route: 048
     Dates: start: 20100916
  10. MYSLEE [Concomitant]
     Indication: INSOMNIA
     Route: 048
     Dates: start: 20100922, end: 201101
  11. TAKEPRON [Concomitant]
     Route: 048
     Dates: start: 20101210
  12. LOXONIN [Concomitant]
     Indication: RHEUMATOID ARTHRITIS
     Route: 048
     Dates: start: 20101210
  13. MUCOSTA [Concomitant]
     Indication: GASTROINTESTINAL DISORDER
     Route: 048
     Dates: start: 20101210
  14. DAI-KENCHU-TO [Concomitant]
     Indication: ABDOMINAL SYMPTOM
     Route: 048
     Dates: start: 20110107
  15. ALINAMIN F [Concomitant]
     Indication: INTERCOSTAL NEURALGIA
     Route: 048
     Dates: start: 20110127
  16. XYZAL [Concomitant]
     Route: 048
     Dates: start: 20110207
  17. MAALOX ADVANCED [Concomitant]
     Indication: GASTROINTESTINAL DISORDER
     Route: 048
     Dates: start: 20110420
  18. LYRICA [Concomitant]
     Indication: NEURALGIA
     Route: 048
     Dates: start: 20101214
  19. DIOVAN [Concomitant]
     Indication: HYPERTENSION
     Route: 048
     Dates: start: 20101216
  20. PROGRAF [Concomitant]
     Indication: RHEUMATOID ARTHRITIS
     Route: 048
     Dates: start: 20110214
  21. FORTEO [Concomitant]
     Indication: SPINAL COMPRESSION FRACTURE
     Route: 058
     Dates: start: 20111012
  22. NORVASC [Concomitant]
     Indication: HYPERTENSION
     Route: 048
     Dates: start: 20111108
  23. SELBEX [Concomitant]
     Route: 048
     Dates: start: 20111209
  24. GASMOTIN [Concomitant]
     Route: 048
     Dates: start: 20111209
  25. FERRUM [Concomitant]
     Indication: ANAEMIA
     Route: 048
     Dates: start: 20120110

REACTIONS (6)
  - Zygomycosis [Recovering/Resolving]
  - Rib fracture [Unknown]
  - Femur fracture [Unknown]
  - Anal prolapse [Unknown]
  - Haemorrhoidal haemorrhage [Unknown]
  - Dyslipidaemia [Recovering/Resolving]
